FAERS Safety Report 21188672 (Version 1)
Quarter: 2022Q3

REPORT INFORMATION
  Report Type: Spontaneous
  Country: NL (occurrence: NL)
  Receive Date: 20220809
  Receipt Date: 20220809
  Transmission Date: 20221027
  Serious: Yes (Disabling)
  Sender: FDA-Public Use
  Company Number: None

PATIENT
  Sex: Female
  Weight: 59 kg

DRUGS (10)
  1. IVABRADINE [Suspect]
     Active Substance: IVABRADINE
     Indication: Sinus tachycardia
     Dosage: 15 MILLIGRAM DAILY; 2X A DAY 1 TABLET,UNIT DOSE AND STRENGTH :7.5MG, BRAND NAME NOT SPECIFIED,FREQUE
     Route: 065
  2. IVABRADINE [Suspect]
     Active Substance: IVABRADINE
     Dosage: 10 MILLIGRAM DAILY; 2X A DAY 1 TABLET , UNIT DOSE : 5MG  , STRENGTH :7.5MG, BRAND NAME NOT SPECIFIED
     Route: 065
     Dates: start: 202109
  3. ATORVASTATIN [Suspect]
     Active Substance: ATORVASTATIN
     Indication: Type IIa hyperlipidaemia
     Dosage: 5 MILLIGRAM DAILY; 5 MG ONCE A DAY, BRAND NAME NOT SPECIFIED, UNIT DOSE : 5MG, THERAPY END DATE : AS
     Route: 065
     Dates: start: 2020
  4. ISOSORBIDE MONONITRATE [Suspect]
     Active Substance: ISOSORBIDE MONONITRATE
     Indication: Vasospasm
     Dosage: 1 DOSAGE FORMS DAILY; 1X PER DAY 1 CAPSULE, ISOSORBIDE MONONITRATE CAPSULE MGA 25MG / MONO CEDOCARD
     Route: 065
     Dates: start: 202112
  5. ZINC [Concomitant]
     Active Substance: ZINC
     Indication: Product used for unknown indication
     Dosage: THERAPY START DATE : ASKU, THERAPY END DATE : ASKU
  6. CHOLECALCIFEROL [Concomitant]
     Active Substance: CHOLECALCIFEROL
     Indication: Product used for unknown indication
     Dosage: 50 MCG , BRAND NAME NOT SPECIFIED, UNIT DOSE : 50MCG, THERAPY START DATE : ASKU, THERAPY END DATE :
  7. ASCORBIC ACID [Concomitant]
     Active Substance: ASCORBIC ACID
     Indication: Product used for unknown indication
     Dosage: 500 MG , BRAND NAME NOT SPECIFIED , THERAPY START DATE : ASKU, THERAPY END DATE : ASKU
  8. CALCIUM [Concomitant]
     Active Substance: CALCIUM
     Indication: Product used for unknown indication
     Dosage: 1000 MG , UNIT DOSE : 1000MG, THERAPY START DATE : ASKU, THERAPY END DATE : ASKU
  9. CYANOCOBALAMIN [Concomitant]
     Active Substance: CYANOCOBALAMIN
     Indication: Product used for unknown indication
     Dosage: 1000MCG , THERAPY START DATE : ASKU, THERAPY END DATE : ASKU , BRAND NAME NOT SPECIFIED,UNIT DOSE AN
  10. MAGNESIUM CITRATE [Concomitant]
     Active Substance: MAGNESIUM CITRATE
     Indication: Product used for unknown indication
     Dosage: 200 MG , BRAND NAME NOT SPECIFIED, THERAPY START DATE : ASKU, THERAPY END DATE : ASKU, UNIT DOSE :

REACTIONS (2)
  - Weight decreased [Recovering/Resolving]
  - Pseudohypoglycaemia [Recovering/Resolving]
